FAERS Safety Report 8163575-5 (Version None)
Quarter: 2012Q1

REPORT INFORMATION
  Report Type: 
  Country: None (occurrence: None)
  Receive Date: 20120224
  Receipt Date: 20120215
  Transmission Date: 20120608
  Serious: Yes (Hospitalization, Other)
  Sender: FDA-Public Use
  Company Number: CA-JNJFOC-20120208319

PATIENT
  Age: 67 Year
  Sex: Male

DRUGS (4)
  1. XARELTO [Suspect]
     Indication: PRODUCT USED FOR UNKNOWN INDICATION
     Route: 048
  2. PANTOPRAZOLE [Concomitant]
     Route: 048
  3. ZOPICLONE [Concomitant]
  4. FLUOXETINE [Concomitant]
     Route: 048

REACTIONS (4)
  - SYNCOPE [None]
  - OEDEMA PERIPHERAL [None]
  - SINUS TACHYCARDIA [None]
  - PULMONARY EMBOLISM [None]
